FAERS Safety Report 10781531 (Version 1)
Quarter: 2015Q1

REPORT INFORMATION
  Report Type: Spontaneous
  Country: FR (occurrence: FR)
  Receive Date: 20150210
  Receipt Date: 20150210
  Transmission Date: 20150721
  Serious: Yes (Other)
  Sender: FDA-Public Use
  Company Number: FR-ASTRAZENECA-2015SE12658

PATIENT
  Age: 3762 Week
  Sex: Male
  Weight: 55 kg

DRUGS (4)
  1. RAMIPRIL. [Concomitant]
     Active Substance: RAMIPRIL
  2. KOMBOGLYZE [Suspect]
     Active Substance: METFORMIN HYDROCHLORIDE\SAXAGLIPTIN
     Indication: TYPE 2 DIABETES MELLITUS
     Dosage: 2.5 MG/ 1000 MG DAILY
     Route: 048
     Dates: start: 20141215, end: 20150117
  3. LOXEN [Concomitant]
     Active Substance: NICARDIPINE HYDROCHLORIDE
  4. ONGLYZA [Suspect]
     Active Substance: SAXAGLIPTIN HYDROCHLORIDE
     Indication: TYPE 2 DIABETES MELLITUS
     Route: 048
     Dates: start: 201404, end: 20141215

REACTIONS (12)
  - Malaise [Unknown]
  - Intentional product misuse [Recovered/Resolved]
  - Polyuria [Unknown]
  - Drug ineffective [Recovered/Resolved]
  - Glycosylated haemoglobin increased [Not Recovered/Not Resolved]
  - Off label use [Recovered/Resolved]
  - Pain [Recovered/Resolved]
  - Blood ketone body increased [Recovered/Resolved]
  - Epigastric discomfort [Unknown]
  - Thirst [Unknown]
  - Blood glucose increased [Recovered/Resolved]
  - Regurgitation [Unknown]

NARRATIVE: CASE EVENT DATE: 20141215
